FAERS Safety Report 25970220 (Version 2)
Quarter: 2025Q4

REPORT INFORMATION
  Report Type: Spontaneous
  Country: US (occurrence: None)
  Receive Date: 20251028
  Receipt Date: 20251215
  Transmission Date: 20260118
  Serious: Yes (Other)
  Sender: UCB
  Company Number: US-UCBSA-2025042165

PATIENT
  Age: 50 Year
  Weight: 90.71 kg

DRUGS (3)
  1. BIMZELX [Suspect]
     Active Substance: BIMEKIZUMAB-BKZX
     Indication: Hidradenitis
     Dosage: 320 MILLIGRAM, EV 2 WEEKS(QOW)
  2. COSENTYX UNOREADY [Concomitant]
     Indication: Product used for unknown indication
  3. clobestasa [Concomitant]
     Indication: Psoriasis
     Dosage: UNK, 2X/DAY (BID)
     Route: 048

REACTIONS (4)
  - Inflammatory bowel disease [Unknown]
  - Hidradenitis [Unknown]
  - Condition aggravated [Unknown]
  - Drug ineffective [Unknown]
